FAERS Safety Report 7047990-9 (Version None)
Quarter: 2010Q4

REPORT INFORMATION
  Report Type: 
  Country: None (occurrence: None)
  Receive Date: 20101015
  Receipt Date: 20101008
  Transmission Date: 20110411
  Serious: Yes (Hospitalization)
  Sender: FDA-Public Use
  Company Number: A0873046A

PATIENT
  Age: 62 Year
  Sex: Female

DRUGS (2)
  1. AVANDIA [Suspect]
     Indication: DIABETES MELLITUS
     Dosage: 4MG PER DAY
     Route: 048
     Dates: start: 20020201, end: 20070701
  2. AVANDAMET [Suspect]
     Route: 048
     Dates: start: 20020201, end: 20070701

REACTIONS (1)
  - CEREBROVASCULAR ACCIDENT [None]
